FAERS Safety Report 11850097 (Version 1)
Quarter: 2015Q4

REPORT INFORMATION
  Report Type: Spontaneous
  Country: US (occurrence: US)
  Receive Date: 20151218
  Receipt Date: 20151218
  Transmission Date: 20160305
  Serious: No
  Sender: FDA-Public Use
  Company Number: US-JNJFOC-20151204231

PATIENT
  Sex: Male

DRUGS (1)
  1. VISINE L.R. [Suspect]
     Active Substance: OXYMETAZOLINE HYDROCHLORIDE
     Indication: PRODUCT USE ISSUE
     Dosage: 1 DROP
     Route: 047

REACTIONS (2)
  - Product use issue [Unknown]
  - Off label use [Unknown]
